FAERS Safety Report 4624385-6 (Version None)
Quarter: 2005Q1

REPORT INFORMATION
  Report Type: 
  Country: None (occurrence: None)
  Receive Date: 20050107
  Receipt Date: 20041101
  Transmission Date: 20050727
  Serious: No
  Sender: FDA-Public Use
  Company Number: 235453K04USA

PATIENT
  Age: 64 Year
  Sex: Female

DRUGS (7)
  1. REBIF [Suspect]
     Indication: MULTIPLE SCLEROSIS
     Dosage: 44 MCG, 3 IN 1 WEEKS, SUBCUTANEOUS
     Route: 058
     Dates: start: 20021218
  2. BACLOFEN [Concomitant]
  3. MAVIK [Concomitant]
  4. HYDROCHLOROTHIAZIDE [Concomitant]
  5. POTASSIUM ACETATE [Concomitant]
  6. OXYBUTYNIN CHLORIDE [Concomitant]
  7. FOSAMAX [Concomitant]

REACTIONS (3)
  - ANKLE FRACTURE [None]
  - COORDINATION ABNORMAL [None]
  - FALL [None]
